FAERS Safety Report 7087181-9 (Version None)
Quarter: 2010Q4

REPORT INFORMATION
  Report Type: 
  Country: None (occurrence: None)
  Receive Date: 20101106
  Receipt Date: 20101102
  Transmission Date: 20110411
  Serious: No
  Sender: FDA-Public Use
  Company Number: US-WYE-H18528010

PATIENT
  Sex: Male

DRUGS (2)
  1. PRISTIQ [Suspect]
     Indication: SUICIDAL IDEATION
     Dosage: UNKNOWN
     Route: 065
  2. PRISTIQ [Suspect]
     Indication: DEPRESSION

REACTIONS (2)
  - EUPHORIC MOOD [None]
  - LIBIDO INCREASED [None]
